FAERS Safety Report 6071427-X (Version None)
Quarter: 2009Q1

REPORT INFORMATION
  Report Type: 
  Country: None (occurrence: None)
  Receive Date: 20090204
  Receipt Date: 20090123
  Transmission Date: 20090719
  Serious: Yes (Hospitalization)
  Sender: FDA-Public Use
  Company Number: 8041752

PATIENT
  Sex: Male
  Weight: 67.1 kg

DRUGS (6)
  1. CIMZIA [Suspect]
     Indication: CROHN'S DISEASE
     Dosage: 400 MG SC
     Route: 058
     Dates: start: 20080701
  2. PREDNISONE [Concomitant]
  3. LIPITOR [Concomitant]
  4. PREVACID [Concomitant]
  5. AMBIEN CR [Concomitant]
  6. KLONOPIN [Concomitant]

REACTIONS (7)
  - ABDOMINAL HERNIA [None]
  - BRONCHITIS [None]
  - COUGH [None]
  - GASTROENTERITIS VIRAL [None]
  - NASAL CONGESTION [None]
  - SINUSITIS [None]
  - VOLVULUS [None]
